FAERS Safety Report 5950552-5 (Version None)
Quarter: 2008Q4

REPORT INFORMATION
  Report Type: 
  Country: None (occurrence: None)
  Receive Date: 20081022
  Receipt Date: 20080605
  Transmission Date: 20090506
  Serious: No
  Sender: FDA-Public Use
  Company Number: ALL1-2008-01731

PATIENT
  Sex: Male

DRUGS (1)
  1. VYVANSE [Suspect]
     Dates: start: 20071001

REACTIONS (2)
  - GASTRIC HYPERMOTILITY [None]
  - WEIGHT DECREASED [None]
